FAERS Safety Report 9256847 (Version 2)
Quarter: 2013Q4

REPORT INFORMATION
  Report Type: Spontaneous
  Country: SZ (occurrence: None)
  Receive Date: 20130417
  Receipt Date: 20131119
  Transmission Date: 20140711
  Serious: Yes (Hospitalization)
  Sender: FDA-Public Use
  Company Number: 2013035435

PATIENT
  Age: 45 Year
  Sex: Male

DRUGS (4)
  1. PRIVIGEN [Suspect]
     Indication: GUILLAIN-BARRE SYNDROME
     Route: 042
     Dates: start: 20130106, end: 20130110
  2. VITAMIN B12 AMINO (CYANOCOBALMIN) [Concomitant]
  3. GLUCOSE (GLUCOSE) [Concomitant]
  4. IMPORTAL (LACTITOL) [Concomitant]

REACTIONS (3)
  - Neutropenia [None]
  - Normochromic normocytic anaemia [None]
  - Haemolysis [None]
